FAERS Safety Report 11295560 (Version 1)
Quarter: 2015Q3

REPORT INFORMATION
  Report Type: Spontaneous
  Country: US (occurrence: None)
  Receive Date: 20150722
  Receipt Date: 20150722
  Transmission Date: 20151125
  Serious: No
  Sender: FDA-Public Use
  Company Number: None

PATIENT
  Age: 55 Year
  Sex: Male
  Weight: 111.2 kg

DRUGS (1)
  1. ALLOPURINOL. [Suspect]
     Active Substance: ALLOPURINOL
     Route: 048
     Dates: start: 20120920, end: 20121005

REACTIONS (3)
  - Erythema multiforme [None]
  - Neisseria infection [None]
  - Stevens-Johnson syndrome [None]

NARRATIVE: CASE EVENT DATE: 20121003
